FAERS Safety Report 21514243 (Version 2)
Quarter: 2022Q4

REPORT INFORMATION
  Report Type: Report from Study
  Country: CN (occurrence: CN)
  Receive Date: 20221027
  Receipt Date: 20221101
  Transmission Date: 20230112
  Serious: Yes (Hospitalization)
  Sender: FDA-Public Use
  Company Number: CN-DSJP-DSE-2022-128011

PATIENT
  Age: 65 Year
  Sex: Male
  Weight: 72 kg

DRUGS (18)
  1. EDOXABAN [Suspect]
     Active Substance: EDOXABAN
     Indication: Atrial fibrillation
     Dosage: 60 MG, QD
     Route: 048
     Dates: start: 20210704, end: 2021
  2. EDOXABAN [Suspect]
     Active Substance: EDOXABAN
     Dosage: 60 MG, QD
     Route: 048
     Dates: start: 2021, end: 2021
  3. EDOXABAN [Suspect]
     Active Substance: EDOXABAN
     Dosage: 60 MG, QD
     Route: 048
     Dates: start: 2021, end: 20210930
  4. EDOXABAN [Suspect]
     Active Substance: EDOXABAN
     Dosage: 60 MG, QD
     Route: 048
     Dates: start: 2021, end: 2021
  5. EDOXABAN [Suspect]
     Active Substance: EDOXABAN
     Dosage: 60 MG, QD
     Route: 048
     Dates: start: 2021, end: 20211222
  6. EDOXABAN [Suspect]
     Active Substance: EDOXABAN
     Dosage: 60 MG, QD
     Route: 048
     Dates: start: 2021, end: 2021
  7. EDOXABAN [Suspect]
     Active Substance: EDOXABAN
     Dosage: 60 MG, QD
     Route: 048
     Dates: start: 2021, end: 2022
  8. EDOXABAN [Suspect]
     Active Substance: EDOXABAN
     Dosage: 60 MG, QD
     Route: 048
     Dates: start: 2022, end: 2022
  9. EDOXABAN [Suspect]
     Active Substance: EDOXABAN
     Dosage: 60 MG, QD
     Route: 048
     Dates: start: 2022, end: 2022
  10. EDOXABAN [Suspect]
     Active Substance: EDOXABAN
     Dosage: 60 MG, QD
     Route: 048
     Dates: start: 2022, end: 20220805
  11. EDOXABAN [Suspect]
     Active Substance: EDOXABAN
     Dosage: 60 MG, QD
     Route: 048
     Dates: start: 20220813
  12. UNSPECIFIED INGREDIENT [Concomitant]
     Active Substance: UNSPECIFIED INGREDIENT
     Indication: Atrial fibrillation
     Dosage: UNK, BID
     Dates: start: 2019
  13. SACUBITRIL\VALSARTAN [Concomitant]
     Active Substance: SACUBITRIL\VALSARTAN
     Indication: Cardiac failure
     Dosage: 25 MG, BID
     Route: 048
     Dates: start: 20200914
  14. DEXAMETHASONE [Concomitant]
     Active Substance: DEXAMETHASONE
     Indication: Cardiac failure
     Dosage: 20 MG, BID
     Route: 048
     Dates: start: 2003
  15. POTASSIUM CHLORIDE [Concomitant]
     Active Substance: POTASSIUM CHLORIDE
     Indication: Electrolyte imbalance
     Dosage: 2 TABLETS, BID
     Route: 048
     Dates: start: 2003, end: 20220805
  16. NICORANDIL [Concomitant]
     Active Substance: NICORANDIL
     Indication: Cardiovascular insufficiency
     Dosage: 5 MG, TID
     Route: 048
     Dates: start: 20200914, end: 20220805
  17. TRADITIONAL CHINESE MEDICINE (TCM) DECOCTION [Concomitant]
     Indication: Cardiac failure
     Dosage: 0.9 G, TID
     Route: 048
     Dates: start: 2019
  18. SOTALOL HYDROCHLORIDE [Concomitant]
     Active Substance: SOTALOL HYDROCHLORIDE
     Indication: Heart rate abnormal
     Dosage: 80 MG, BID
     Route: 048
     Dates: start: 2019, end: 20220805

REACTIONS (4)
  - Atrial fibrillation [Recovering/Resolving]
  - Gout [Not Recovered/Not Resolved]
  - Occult blood [Not Recovered/Not Resolved]
  - Coagulation test abnormal [Not Recovered/Not Resolved]

NARRATIVE: CASE EVENT DATE: 20220611
